FAERS Safety Report 16695698 (Version 2)
Quarter: 2019Q3

REPORT INFORMATION
  Report Type: Report from Study
  Country: FR (occurrence: FR)
  Receive Date: 20190813
  Receipt Date: 20190920
  Transmission Date: 20191004
  Serious: Yes (Death, Other)
  Sender: FDA-Public Use
  Company Number: FR-ACCORD-151126

PATIENT
  Age: 0 Year
  Sex: Male

DRUGS (9)
  1. MYCOPHENOLIC ACID. [Suspect]
     Active Substance: MYCOPHENOLIC ACID
     Indication: PROPHYLAXIS AGAINST GRAFT VERSUS HOST DISEASE
     Dosage: 90 MG/KG DAILY; IN 2 DIVIDED DOSES
     Route: 065
  2. CICLOSPORIN [Concomitant]
     Active Substance: CYCLOSPORINE
     Indication: PROPHYLAXIS AGAINST GRAFT VERSUS HOST DISEASE
     Dosage: TROUGH TARGETED LEVEL OF 150 TO 200 MG/L ; STARTED ON DAY 5
     Route: 065
  3. RITUXIMAB. [Suspect]
     Active Substance: RITUXIMAB
     Indication: PRODUCT USED FOR UNKNOWN INDICATION
     Dosage: SEROTHERAPY, ON D-12
     Route: 065
  4. CYCLOPHOSPHAMIDE/CYCLOPHOSPHAMIDE MONOHYDRATE [Concomitant]
     Indication: PROPHYLAXIS AGAINST GRAFT VERSUS HOST DISEASE
     Dosage: 50 MG/KG DAILY; ON DAYS 3 AND 4
     Route: 065
  5. BUSULFAN. [Suspect]
     Active Substance: BUSULFAN
     Indication: BONE MARROW CONDITIONING REGIMEN
     Dosage: ADMINISTERED IN 4 DAILY DOSES FROM D-8 TO D-5
     Route: 042
  6. CICLOSPORIN [Suspect]
     Active Substance: CYCLOSPORINE
     Indication: PROPHYLAXIS AGAINST GRAFT VERSUS HOST DISEASE
  7. ALEMTUZUMAB [Suspect]
     Active Substance: ALEMTUZUMAB
     Indication: PRODUCT USED FOR UNKNOWN INDICATION
     Dosage: 0.4-1 MG/KG TOTAL DOSE (MEDIAN 0.5 MG/KG)
     Route: 065
  8. FLUDARABINE/FLUDARABINE PHOSPHATE [Suspect]
     Active Substance: FLUDARABINE PHOSPHATE
     Indication: BONE MARROW CONDITIONING REGIMEN
     Dosage: 40 MG/M2 DAILY; FROM DAYS 6 TO 2
     Route: 065
  9. DEFIBROTIDE [Concomitant]
     Active Substance: DEFIBROTIDE (BOVINE)
     Indication: VENOOCCLUSIVE DISEASE
     Route: 065

REACTIONS (2)
  - Venoocclusive disease [Fatal]
  - Cytomegalovirus infection [Fatal]
